FAERS Safety Report 4627869-X (Version None)
Quarter: 2005Q2

REPORT INFORMATION
  Report Type: 
  Country: None (occurrence: None)
  Receive Date: 20050406
  Receipt Date: 20050127
  Transmission Date: 20051028
  Serious: Yes (Death)
  Sender: FDA-Public Use
  Company Number: 200510355JP

PATIENT
  Age: 74 Year
  Sex: Male

DRUGS (8)
  1. ARAVA [Suspect]
     Indication: RHEUMATOID ARTHRITIS
     Route: 048
     Dates: start: 20031114, end: 20040111
  2. PREDONINE [Concomitant]
     Indication: MUSCULOSKELETAL PAIN
     Route: 048
  3. SELBEX [Concomitant]
     Indication: PROPHYLAXIS AGAINST GASTROINTESTINAL ULCER
     Route: 048
  4. TAKEPRON [Concomitant]
     Indication: MUSCULOSKELETAL PAIN
     Route: 048
  5. AZULFIDINE [Concomitant]
     Indication: MUSCULOSKELETAL PAIN
     Route: 048
  6. RHEUMATREX [Concomitant]
     Indication: MUSCULOSKELETAL PAIN
     Route: 048
     Dates: end: 20031027
  7. VOLTAREN [Concomitant]
     Indication: MUSCULOSKELETAL PAIN
     Route: 054
     Dates: start: 20031024, end: 20031211
  8. SM [Concomitant]
     Indication: PROPHYLAXIS AGAINST GASTROINTESTINAL ULCER
     Route: 048

REACTIONS (4)
  - DIVERTICULITIS [None]
  - MULTI-ORGAN FAILURE [None]
  - PERITONITIS [None]
  - RETROPERITONEAL ABSCESS [None]
